FAERS Safety Report 5604753-6 (Version None)
Quarter: 2008Q1

REPORT INFORMATION
  Report Type: 
  Country: None (occurrence: None)
  Receive Date: 20080123
  Receipt Date: 20080109
  Transmission Date: 20080703
  Serious: Yes (Hospitalization)
  Sender: FDA-Public Use
  Company Number: 022463

PATIENT
  Age: 43 Year
  Sex: Female

DRUGS (1)
  1. SEASONIQUE [Suspect]
     Indication: DYSMENORRHOEA
     Dosage: 1 TABLET, QD, ORAL
     Route: 048
     Dates: start: 20070701

REACTIONS (2)
  - ABDOMINAL PAIN [None]
  - APPENDICITIS [None]
